FAERS Safety Report 19813752 (Version 1)
Quarter: 2021Q3

REPORT INFORMATION
  Report Type: Spontaneous
  Country: US (occurrence: US)
  Receive Date: 20210908
  Receipt Date: 20210908
  Transmission Date: 20211014
  Serious: Yes (Hospitalization)
  Sender: FDA-Public Use
  Company Number: None

PATIENT
  Sex: Female
  Weight: 79.8 kg

DRUGS (1)
  1. ARIMIDEX [Suspect]
     Active Substance: ANASTROZOLE

REACTIONS (13)
  - Dyspnoea [None]
  - Oxygen saturation decreased [None]
  - Pallor [None]
  - Thrombocytopenia [None]
  - Haemodialysis [None]
  - Loss of consciousness [None]
  - Respiratory failure [None]
  - Malaise [None]
  - COVID-19 pneumonia [None]
  - Hyperhidrosis [None]
  - Asthenia [None]
  - Pancytopenia [None]
  - Syncope [None]

NARRATIVE: CASE EVENT DATE: 20210815
